FAERS Safety Report 6405213-5 (Version None)
Quarter: 2009Q4

REPORT INFORMATION
  Report Type: 
  Country: None (occurrence: None)
  Receive Date: 20091019
  Receipt Date: 20091007
  Transmission Date: 20100525
  Serious: Yes (Other)
  Sender: FDA-Public Use
  Company Number: PHEH2009US13469

PATIENT
  Age: 58 Year
  Sex: Male

DRUGS (1)
  1. EXELON [Suspect]
     Route: 062

REACTIONS (1)
  - DELUSIONAL DISORDER, PERSECUTORY TYPE [None]
